FAERS Safety Report 6526740-6 (Version None)
Quarter: 2010Q1

REPORT INFORMATION
  Report Type: 
  Country: None (occurrence: None)
  Receive Date: 20100104
  Receipt Date: 20100104
  Transmission Date: 20100710
  Serious: Yes (Other)
  Sender: FDA-Public Use
  Company Number: None

PATIENT
  Sex: Female
  Weight: 70.3075 kg

DRUGS (3)
  1. SIMVASTATIN [Suspect]
     Indication: NERVOUS SYSTEM DISORDER
     Dosage: 1 TABLET IN MORN
     Dates: start: 20080617
  2. SIMVASTATIN [Suspect]
     Indication: NERVOUS SYSTEM DISORDER
     Dosage: 1 TABLET IN MORN
     Dates: start: 20091201
  3. LORAZEPAM [Suspect]
     Indication: DIZZINESS
     Dosage: 2 TABLETS AT BEDTIME

REACTIONS (2)
  - DIZZINESS [None]
  - MUSCLE SPASMS [None]
